APPROVED DRUG PRODUCT: TECHNETIUM TC 99M SESTAMIBI
Active Ingredient: TECHNETIUM TC-99M SESTAMIBI KIT
Strength: 10-30mCi
Dosage Form/Route: INJECTABLE;INJECTION
Application: A079157 | Product #001
Applicant: SUN PHARMACEUTICAL INDUSTRIES INC
Approved: Jul 10, 2009 | RLD: No | RS: No | Type: DISCN